FAERS Safety Report 14742169 (Version 2)
Quarter: 2018Q3

REPORT INFORMATION
  Report Type: Spontaneous
  Country: US (occurrence: US)
  Receive Date: 20180410
  Receipt Date: 20180801
  Transmission Date: 20181010
  Serious: Yes (Other)
  Sender: FDA-Public Use
  Company Number: US-ASTRAZENECA-2018SE42836

PATIENT
  Age: 821 Month
  Sex: Male
  Weight: 106.6 kg

DRUGS (23)
  1. ACIPHEX [Suspect]
     Active Substance: RABEPRAZOLE SODIUM
     Indication: BARRETT^S OESOPHAGUS
     Route: 065
     Dates: start: 2003, end: 2007
  2. LIPITOR [Concomitant]
     Active Substance: ATORVASTATIN CALCIUM
  3. DIOVAN [Concomitant]
     Active Substance: VALSARTAN
  4. VITAMIN D3 [Concomitant]
     Active Substance: CHOLECALCIFEROL
  5. VITAMIN K2 [Concomitant]
     Active Substance: MENAQUINONE 6
  6. VALSARTAN. [Concomitant]
     Active Substance: VALSARTAN
  7. NIFEDIPINE. [Concomitant]
     Active Substance: NIFEDIPINE
  8. ALLOPURINOL. [Concomitant]
     Active Substance: ALLOPURINOL
  9. CLARITIN [Concomitant]
     Active Substance: LORATADINE
  10. ISRADIPINE. [Concomitant]
     Active Substance: ISRADIPINE
  11. NEXIUM [Suspect]
     Active Substance: ESOMEPRAZOLE MAGNESIUM
     Indication: BARRETT^S OESOPHAGUS
     Route: 048
     Dates: start: 1992, end: 2018
  12. NEXIUM [Suspect]
     Active Substance: ESOMEPRAZOLE MAGNESIUM
     Indication: BARRETT^S OESOPHAGUS
     Route: 048
     Dates: start: 20080417
  13. PANTOPRAZOLE [Suspect]
     Active Substance: PANTOPRAZOLE
     Indication: BARRETT^S OESOPHAGUS
     Route: 065
     Dates: start: 2018
  14. METFORMIN [Concomitant]
     Active Substance: METFORMIN HYDROCHLORIDE
  15. COLCHICINE. [Concomitant]
     Active Substance: COLCHICINE
  16. DIOVAN/HYDROCHLOROTHIAZIDE [Concomitant]
  17. NEXIUM [Suspect]
     Active Substance: ESOMEPRAZOLE MAGNESIUM
     Indication: BARRETT^S OESOPHAGUS
     Route: 048
     Dates: start: 2008
  18. INSPRA [Concomitant]
     Active Substance: EPLERENONE
  19. COREG [Concomitant]
     Active Substance: CARVEDILOL
  20. CARVEDILOL. [Concomitant]
     Active Substance: CARVEDILOL
  21. BYETTA [Concomitant]
     Active Substance: EXENATIDE
  22. METAMUCIL [Concomitant]
     Active Substance: PLANTAGO SEED
  23. METFORMIN [Concomitant]
     Active Substance: METFORMIN HYDROCHLORIDE

REACTIONS (1)
  - Chronic kidney disease [Unknown]

NARRATIVE: CASE EVENT DATE: 201603
